FAERS Safety Report 4833365-7 (Version None)
Quarter: 2005Q4

REPORT INFORMATION
  Report Type: 
  Country: None (occurrence: None)
  Receive Date: 20051117
  Receipt Date: 20051114
  Transmission Date: 20060501
  Serious: Yes (Other)
  Sender: FDA-Public Use
  Company Number: 143708USA

PATIENT
  Age: 39 Year
  Sex: Female

DRUGS (4)
  1. GLATIRAMER ACETATE [Suspect]
     Indication: MULTIPLE SCLEROSIS
     Dosage: 20 MILLIGRAM
     Route: 058
     Dates: start: 20000303, end: 20051001
  2. CELEXA [Concomitant]
  3. CLONAZEPAM [Concomitant]
  4. CLOZAPINE [Concomitant]

REACTIONS (2)
  - INJECTION SITE HAEMORRHAGE [None]
  - SKIN NECROSIS [None]
